FAERS Safety Report 7672357-X (Version None)
Quarter: 2011Q3

REPORT INFORMATION
  Report Type: 
  Country: None (occurrence: None)
  Receive Date: 20110809
  Receipt Date: 20110801
  Transmission Date: 20111222
  Serious: Yes (Hospitalization)
  Sender: FDA-Public Use
  Company Number: TW-BRISTOL-MYERS SQUIBB COMPANY-15938814

PATIENT
  Age: 44 Year
  Sex: Female

DRUGS (2)
  1. ZOTEPINE [Suspect]
  2. TRAZODONE HCL [Suspect]

REACTIONS (3)
  - OVERDOSE [None]
  - ACUTE RESPIRATORY DISTRESS SYNDROME [None]
  - RESPIRATORY FAILURE [None]
